FAERS Safety Report 7460981-9 (Version None)
Quarter: 2011Q2

REPORT INFORMATION
  Report Type: 
  Country: None (occurrence: None)
  Receive Date: 20110505
  Receipt Date: 20110428
  Transmission Date: 20111010
  Serious: Yes (Death, Hospitalization, Other)
  Sender: FDA-Public Use
  Company Number: US-AMGEN-US352275

PATIENT
  Age: 84 Year
  Sex: Female
  Weight: 47.2 kg

DRUGS (3)
  1. IMMUNOGLOBULINS [Concomitant]
     Dosage: UNK UNK, UNK
     Route: 042
     Dates: start: 20081031, end: 20081031
  2. NPLATE [Suspect]
     Indication: IDIOPATHIC THROMBOCYTOPENIC PURPURA
     Dosage: 150 A?G, UNK
     Route: 065
     Dates: start: 20081113, end: 20081126
  3. CYCLOSPORINE [Concomitant]
     Dosage: 250 MG, BID

REACTIONS (2)
  - DRUG INEFFECTIVE [None]
  - APLASTIC ANAEMIA [None]
